FAERS Safety Report 9971876 (Version 1)
Quarter: 2014Q1

REPORT INFORMATION
  Report Type: Report from Study
  Country: US (occurrence: US)
  Receive Date: 20140306
  Receipt Date: 20140306
  Transmission Date: 20141002
  Serious: No
  Sender: FDA-Public Use
  Company Number: US-ABBVIE-13P-163-1151191-00

PATIENT
  Age: 21 Year
  Sex: Male
  Weight: 65.83 kg

DRUGS (3)
  1. HUMIRA [Suspect]
     Indication: CROHN^S DISEASE
     Route: 058
     Dates: start: 201301
  2. AZATHIOPRINE [Concomitant]
     Indication: CROHN^S DISEASE
  3. PROTOPIC [Concomitant]
     Indication: PSORIASIS
     Dosage: PRN

REACTIONS (1)
  - Incorrect dose administered [Recovered/Resolved]
